FAERS Safety Report 6196556-1 (Version None)
Quarter: 2009Q2

REPORT INFORMATION
  Report Type: 
  Country: None (occurrence: None)
  Receive Date: 20090518
  Receipt Date: 20090518
  Transmission Date: 20091009
  Serious: Yes (Other)
  Sender: FDA-Public Use
  Company Number: None

PATIENT
  Sex: Female
  Weight: 58.9676 kg

DRUGS (2)
  1. TOPIRAMATE [Suspect]
     Indication: CONVULSION
     Dosage: 125MG DAILY PO TAKEN DAILY
     Route: 048
     Dates: start: 20090503, end: 20090515
  2. TOPIRAMATE [Suspect]
     Indication: MIGRAINE
     Dosage: 125MG DAILY PO TAKEN DAILY
     Route: 048
     Dates: start: 20090503, end: 20090515

REACTIONS (3)
  - CONVULSION [None]
  - HEADACHE [None]
  - PRODUCT SUBSTITUTION ISSUE [None]
